FAERS Safety Report 4677236-8 (Version None)
Quarter: 2005Q2

REPORT INFORMATION
  Report Type: 
  Country: None (occurrence: None)
  Receive Date: 20050531
  Receipt Date: 20050520
  Transmission Date: 20051028
  Serious: Yes (Death)
  Sender: FDA-Public Use
  Company Number: RU-NOVOPROD-244312

PATIENT
  Age: 9 Year

DRUGS (1)
  1. NOVOSEVEN [Suspect]
     Indication: HAEMORRHAGE
     Dosage: 160 UG/KG 2 H APART

REACTIONS (2)
  - CONCOMITANT DISEASE PROGRESSION [None]
  - HAEMORRHAGE INTRACRANIAL [None]
